FAERS Safety Report 14521344 (Version 1)
Quarter: 2018Q1

REPORT INFORMATION
  Report Type: Spontaneous
  Country: US (occurrence: US)
  Receive Date: 20180212
  Receipt Date: 20180212
  Transmission Date: 20180509
  Serious: No
  Sender: FDA-Public Use
  Company Number: US-RISING PHARMACEUTICALS, INC.-2017RIS00023

PATIENT
  Sex: Male

DRUGS (3)
  1. UNSPECIFIED PREDNISONE PRODUCT [Concomitant]
  2. DICLOFENAC [Suspect]
     Active Substance: DICLOFENAC
     Dosage: UNK
     Route: 047
  3. DICLOFENAC [Suspect]
     Active Substance: DICLOFENAC
     Indication: CATARACT OPERATION
     Dosage: UNK
     Route: 047

REACTIONS (2)
  - Product administered at inappropriate site [Unknown]
  - Eye swelling [Unknown]
